FAERS Safety Report 8537200-5 (Version None)
Quarter: 2012Q3

REPORT INFORMATION
  Report Type: 
  Country: None (occurrence: None)
  Receive Date: 20120725
  Receipt Date: 20120716
  Transmission Date: 20120928
  Serious: Yes (Hospitalization)
  Sender: FDA-Public Use
  Company Number: US-ACTELION-A-US2012-61130

PATIENT

DRUGS (1)
  1. TRACLEER [Suspect]
     Indication: PULMONARY ARTERIAL HYPERTENSION
     Dosage: UNK
     Route: 048
     Dates: start: 20070427

REACTIONS (6)
  - PACKED RED BLOOD CELL TRANSFUSION [None]
  - FLUID RETENTION [None]
  - FATIGUE [None]
  - DIZZINESS [None]
  - DEVICE ISSUE [None]
  - DYSPNOEA [None]
